FAERS Safety Report 5283042-6 (Version None)
Quarter: 2007Q1

REPORT INFORMATION
  Report Type: 
  Country: None (occurrence: None)
  Receive Date: 20070328
  Receipt Date: 20070328
  Transmission Date: 20070707
  Serious: Yes (Life-Threatening, Other)
  Sender: FDA-Public Use
  Company Number: None

PATIENT
  Age: 44 Year
  Sex: Male
  Weight: 63.5036 kg

DRUGS (2)
  1. LUNESTA [Suspect]
     Indication: ANXIETY
     Dosage: 3 MG 1 / NIGHT PO
     Route: 048
     Dates: start: 20070327, end: 20070327
  2. LUNESTA [Suspect]
     Indication: POOR QUALITY SLEEP
     Dosage: 3 MG 1 / NIGHT PO
     Route: 048
     Dates: start: 20070327, end: 20070327

REACTIONS (3)
  - ABNORMAL BEHAVIOUR [None]
  - AMNESIA [None]
  - EMOTIONAL DISTRESS [None]
